FAERS Safety Report 8054868-0 (Version None)
Quarter: 2012Q1

REPORT INFORMATION
  Report Type: 
  Country: None (occurrence: None)
  Receive Date: 20120119
  Receipt Date: 20120112
  Transmission Date: 20120608
  Serious: Yes (Other)
  Sender: FDA-Public Use
  Company Number: GB-JNJFOC-20120105949

PATIENT
  Sex: Male

DRUGS (1)
  1. PALIPERIDONE [Suspect]
     Indication: PSYCHOTIC DISORDER
     Route: 030
     Dates: start: 20110929

REACTIONS (3)
  - ERECTILE DYSFUNCTION [None]
  - BONE DISORDER [None]
  - HYPERPROLACTINAEMIA [None]
